FAERS Safety Report 7359091-0 (Version None)
Quarter: 2011Q1

REPORT INFORMATION
  Report Type: 
  Country: None (occurrence: None)
  Receive Date: 20110317
  Receipt Date: 20110304
  Transmission Date: 20110831
  Serious: Yes (Hospitalization, Other)
  Sender: FDA-Public Use
  Company Number: US-BAYER-201036188NA

PATIENT
  Sex: Female
  Weight: 75 kg

DRUGS (9)
  1. NEXIUM [Concomitant]
  2. OCELLA [Suspect]
     Indication: MENSTRUATION IRREGULAR
     Dosage: UNK
     Dates: start: 20020101, end: 20090101
  3. YAZ [Suspect]
     Indication: MENSTRUATION IRREGULAR
     Dosage: UNK
     Dates: start: 20020101, end: 20090101
  4. YAZ [Suspect]
     Indication: ORAL CONTRACEPTION
  5. IBUPROFEN [Concomitant]
     Dosage: UNK
     Dates: start: 20020101
  6. YASMIN [Suspect]
     Indication: ORAL CONTRACEPTION
     Dosage: UNK
     Route: 048
     Dates: start: 20020101, end: 20090101
  7. YASMIN [Suspect]
     Indication: MENSTRUATION IRREGULAR
  8. OCELLA [Suspect]
     Indication: ORAL CONTRACEPTION
  9. IBUPROFEN [Concomitant]
     Dosage: UNK
     Dates: start: 20100101

REACTIONS (3)
  - CHOLELITHIASIS [None]
  - APPENDICITIS [None]
  - GALLBLADDER DISORDER [None]
